FAERS Safety Report 5814874-0 (Version None)
Quarter: 2008Q3

REPORT INFORMATION
  Report Type: 
  Country: None (occurrence: None)
  Receive Date: 20080718
  Receipt Date: 20080624
  Transmission Date: 20090109
  Serious: No
  Sender: FDA-Public Use
  Company Number: US-AVENTIS-200813880US

PATIENT
  Age: 58 Year
  Sex: Female

DRUGS (8)
  1. TAXOTERE [Suspect]
     Indication: BREAST CANCER
     Route: 042
  2. KERLONE                            /00706301/ [Concomitant]
     Dosage: DOSE: UNK
  3. ACTOS [Concomitant]
     Dosage: DOSE: UNK
  4. METFORMIN HCL [Concomitant]
     Dosage: DOSE: UNK
  5. HYZAAR [Concomitant]
     Dosage: DOSE: UNK
  6. PROCARDIA XL [Concomitant]
     Dosage: DOSE: UNK
  7. ORAL ANTIDIABETICS [Concomitant]
     Dosage: DOSE: UNK
  8. COMPAZINE [Concomitant]
     Dosage: DOSE: UNK

REACTIONS (1)
  - TREMOR [None]
